FAERS Safety Report 9384426 (Version 1)
Quarter: 2013Q3

REPORT INFORMATION
  Report Type: Report from Study
  Country: UZ (occurrence: UZ)
  Receive Date: 20130705
  Receipt Date: 20130705
  Transmission Date: 20140515
  Serious: Yes (Death)
  Sender: FDA-Public Use
  Company Number: PHHY2013UZ070664

PATIENT
  Sex: Female

DRUGS (1)
  1. GLIVEC [Suspect]
     Indication: CHRONIC MYELOID LEUKAEMIA
     Dosage: 260 MG, UNK

REACTIONS (3)
  - Aplasia [Fatal]
  - Chronic myeloid leukaemia [Fatal]
  - Blast crisis in myelogenous leukaemia [Fatal]
